FAERS Safety Report 8359268-1 (Version None)
Quarter: 2012Q2

REPORT INFORMATION
  Report Type: 
  Country: None (occurrence: None)
  Receive Date: 20120514
  Receipt Date: 20120514
  Transmission Date: 20120825
  Serious: No
  Sender: FDA-Public Use
  Company Number: None

PATIENT
  Age: 54 Year
  Sex: Male
  Weight: 83.9154 kg

DRUGS (1)
  1. MIRAPEX ER [Suspect]
     Dosage: 3MG ER DAILY PO
     Route: 048

REACTIONS (3)
  - OBSESSIVE-COMPULSIVE DISORDER [None]
  - PARKINSON'S DISEASE [None]
  - CONDITION AGGRAVATED [None]
